FAERS Safety Report 13572429 (Version 1)
Quarter: 2017Q2

REPORT INFORMATION
  Report Type: Spontaneous
  Country: US (occurrence: US)
  Receive Date: 20170523
  Receipt Date: 20170523
  Transmission Date: 20170830
  Serious: Yes (Other)
  Sender: FDA-Public Use
  Company Number: None

PATIENT
  Age: 35 Year
  Sex: Male
  Weight: 81 kg

DRUGS (1)
  1. CILOXAN [Suspect]
     Active Substance: CIPROFLOXACIN HYDROCHLORIDE
     Indication: ULCERATIVE KERATITIS
     Route: 047
     Dates: start: 20170515, end: 20170521

REACTIONS (5)
  - Eye pruritus [None]
  - Eye pain [None]
  - Eyelid oedema [None]
  - Ocular hyperaemia [None]
  - Application site reaction [None]

NARRATIVE: CASE EVENT DATE: 20170516
